FAERS Safety Report 18224580 (Version 2)
Quarter: 2020Q3

REPORT INFORMATION
  Report Type: Spontaneous
  Country: US (occurrence: US)
  Receive Date: 20200902
  Receipt Date: 20200917
  Transmission Date: 20201103
  Serious: No
  Sender: FDA-Public Use
  Company Number: US-JNJFOC-20200901370

PATIENT

DRUGS (1)
  1. WOMENS ROGAINE UNSCENTED [Suspect]
     Active Substance: MINOXIDIL
     Indication: ALOPECIA
     Dosage: FREQUENCY: AMOUNT DIRECTIONS INDICATE 4?5 TIMES PER WEEK
     Route: 061

REACTIONS (2)
  - Inappropriate schedule of product administration [Unknown]
  - Hair colour changes [Not Recovered/Not Resolved]
